FAERS Safety Report 15563776 (Version 1)
Quarter: 2018Q4

REPORT INFORMATION
  Report Type: Spontaneous
  Country: JP (occurrence: JP)
  Receive Date: 20181029
  Receipt Date: 20181029
  Transmission Date: 20190205
  Serious: Yes (Death, Other)
  Sender: FDA-Public Use
  Company Number: JP-TAKEDA-2018TJP026991

PATIENT
  Sex: Female

DRUGS (2)
  1. TAKEPRON INTRAVENOUS 30MG. [Suspect]
     Active Substance: LANSOPRAZOLE
     Indication: PRODUCT USED FOR UNKNOWN INDICATION
     Dosage: UNK
     Route: 042
  2. SOLITA-T1 [Concomitant]
     Dosage: UNK
     Route: 042

REACTIONS (4)
  - Death [Fatal]
  - Blood potassium increased [Unknown]
  - Wrong technique in product usage process [Unknown]
  - Product preparation issue [Unknown]
